FAERS Safety Report 16478669 (Version 1)
Quarter: 2019Q2

REPORT INFORMATION
  Report Type: Spontaneous
  Country: US (occurrence: US)
  Receive Date: 20190626
  Receipt Date: 20190626
  Transmission Date: 20190711
  Serious: No
  Sender: FDA-Public Use
  Company Number: US-PFIZER INC-2018208981

PATIENT
  Age: 48 Year
  Sex: Female
  Weight: 72 kg

DRUGS (3)
  1. LETROZOLE. [Concomitant]
     Active Substance: LETROZOLE
     Indication: BREAST CANCER METASTATIC
     Dosage: 2.5 MG, 1X/DAY (2.5MG TABLETS BY MOUTH ONCE PER DAY)
     Route: 048
     Dates: start: 2016
  2. XARELTO [Concomitant]
     Active Substance: RIVAROXABAN
     Indication: BLOOD DISORDER
     Dosage: 20 MG, 1X/DAY
     Route: 048
     Dates: start: 201511
  3. IBRANCE [Suspect]
     Active Substance: PALBOCICLIB
     Indication: BREAST CANCER METASTATIC
     Dosage: 100 MG, CYCLIC (ONCE PER DAY 21 DAYS ON AND 7 DAYS OFF)
     Route: 048
     Dates: start: 2016

REACTIONS (1)
  - Fatigue [Unknown]
